FAERS Safety Report 5453935-5 (Version None)
Quarter: 2007Q3

REPORT INFORMATION
  Report Type: 
  Country: None (occurrence: None)
  Receive Date: 20070917
  Receipt Date: 20070904
  Transmission Date: 20080115
  Serious: Yes (Other)
  Sender: FDA-Public Use
  Company Number: US-AMGEN-US153032

PATIENT
  Sex: Female
  Weight: 99 kg

DRUGS (7)
  1. ENBREL [Suspect]
     Indication: RHEUMATOID ARTHRITIS
     Route: 058
     Dates: start: 20040826
  2. METHOTREXATE [Concomitant]
     Route: 065
     Dates: start: 20030101
  3. PLAQUENIL [Concomitant]
     Route: 065
     Dates: start: 20030101
  4. MELOXICAM [Concomitant]
     Route: 065
  5. PREDNISONE TAB [Concomitant]
     Route: 065
  6. ADVAIR DISKUS 100/50 [Concomitant]
     Route: 065
  7. ALBUTEROL [Concomitant]
     Route: 065

REACTIONS (3)
  - INTERSTITIAL LUNG DISEASE [None]
  - PULMONARY TUBERCULOSIS [None]
  - ROTATOR CUFF SYNDROME [None]
